FAERS Safety Report 12549209 (Version 1)
Quarter: 2016Q3

REPORT INFORMATION
  Report Type: Spontaneous
  Country: JP (occurrence: JP)
  Receive Date: 20160712
  Receipt Date: 20160712
  Transmission Date: 20161109
  Serious: Yes (Life-Threatening, Other)
  Sender: FDA-Public Use
  Company Number: JP-ELI_LILLY_AND_COMPANY-JP201606008212

PATIENT
  Age: 45 Year
  Sex: Male

DRUGS (1)
  1. ZYPREXA [Suspect]
     Active Substance: OLANZAPINE
     Indication: SCHIZOPHRENIA
     Dosage: UNK
     Route: 048

REACTIONS (4)
  - Asthma [Unknown]
  - Blood glucose increased [Recovered/Resolved]
  - Hypoxic-ischaemic encephalopathy [Unknown]
  - Cardiac arrest [Recovered/Resolved with Sequelae]

NARRATIVE: CASE EVENT DATE: 20160623
